FAERS Safety Report 8017260-0 (Version None)
Quarter: 2012Q1

REPORT INFORMATION
  Report Type: 
  Country: None (occurrence: None)
  Receive Date: 20120102
  Receipt Date: 20111228
  Transmission Date: 20120608
  Serious: Yes (Hospitalization)
  Sender: FDA-Public Use
  Company Number: PHEH2011US008903

PATIENT
  Sex: Male

DRUGS (5)
  1. GABAPENTIN [Concomitant]
     Indication: NEURALGIA
     Dosage: 600 MG, TID
     Route: 048
     Dates: start: 20110101
  2. BACLOFEN [Concomitant]
     Indication: MUSCLE SPASMS
     Dosage: 20 MG, UNK
     Route: 048
     Dates: start: 20100101
  3. GILENYA [Suspect]
     Indication: MULTIPLE SCLEROSIS
     Dosage: 0.5 MG, QD
     Route: 048
     Dates: start: 20110728
  4. ROXICODONE [Concomitant]
     Indication: PAIN
     Dosage: 15 MG, TID 30 QHS
     Route: 048
     Dates: start: 20100101
  5. AMLODIPINE [Concomitant]
     Indication: HYPERTENSION
     Dosage: 5 MG, BID
     Route: 048

REACTIONS (4)
  - CELLULITIS [None]
  - DYSPNOEA [None]
  - CHEST PAIN [None]
  - OEDEMA PERIPHERAL [None]
